FAERS Safety Report 24174962 (Version 1)
Quarter: 2024Q3

REPORT INFORMATION
  Report Type: Spontaneous
  Country: US (occurrence: US)
  Receive Date: 20240805
  Receipt Date: 20240805
  Transmission Date: 20241016
  Serious: No
  Sender: SANOFI AVENTIS
  Company Number: US-SA-SAC20240731000968

PATIENT
  Sex: Female

DRUGS (6)
  1. DUPIXENT [Suspect]
     Active Substance: DUPILUMAB
     Indication: Dermatitis atopic
     Dosage: 300 MG, QOW
     Route: 058
  2. CANDESARTAN [Concomitant]
     Active Substance: CANDESARTAN
  3. CELEBREX [Concomitant]
     Active Substance: CELECOXIB
  4. HYDROCHLOROTHIAZIDE [Concomitant]
     Active Substance: HYDROCHLOROTHIAZIDE
  5. CENTRUM ADULTS [Concomitant]
  6. LIVERITE [Concomitant]

REACTIONS (3)
  - Migraine [Unknown]
  - Vision blurred [Unknown]
  - Arthralgia [Unknown]
